FAERS Safety Report 17753369 (Version 2)
Quarter: 2020Q2

REPORT INFORMATION
  Report Type: Spontaneous
  Country: US (occurrence: US)
  Receive Date: 20200506
  Receipt Date: 20200518
  Transmission Date: 20200714
  Serious: No
  Sender: FDA-Public Use
  Company Number: US-PFIZER INC-2020132517

PATIENT
  Age: 3 Year
  Sex: Female
  Weight: 17 kg

DRUGS (3)
  1. GENOTROPIN [Suspect]
     Active Substance: SOMATROPIN
     Dosage: 0.8 MG AND 0.6 MG ON ALTERNATING DAYS AS A DAILY DOSE
     Dates: start: 20200325
  2. GENOTROPIN [Suspect]
     Active Substance: SOMATROPIN
     Indication: HYPOGLYCAEMIA
     Dosage: 0.7 MG
     Dates: start: 20200325
  3. GENOTROPIN [Suspect]
     Active Substance: SOMATROPIN
     Dosage: 0.8 MG AND 0.6 MG ON ALTERNATING DAYS AS A DAILY DOSE
     Dates: start: 20200325

REACTIONS (9)
  - Drug effective for unapproved indication [Unknown]
  - Product prescribing error [Unknown]
  - Incorrect dose administered [Unknown]
  - Device leakage [Unknown]
  - Device dispensing error [Unknown]
  - Product use in unapproved indication [Unknown]
  - Wrong technique in device usage process [Unknown]
  - Product dose omission [Unknown]
  - Off label use [Unknown]

NARRATIVE: CASE EVENT DATE: 20200325
